APPROVED DRUG PRODUCT: NICARDIPINE HYDROCHLORIDE
Active Ingredient: NICARDIPINE HYDROCHLORIDE
Strength: 25MG/10ML (2.5MG/ML)
Dosage Form/Route: INJECTABLE;INJECTION
Application: A090664 | Product #001 | TE Code: AP
Applicant: SOMERSET THERAPEUTICS LLC
Approved: Nov 17, 2009 | RLD: No | RS: No | Type: RX